FAERS Safety Report 20816732 (Version 1)
Quarter: 2022Q2

REPORT INFORMATION
  Report Type: Spontaneous
  Country: US (occurrence: US)
  Receive Date: 20220512
  Receipt Date: 20220512
  Transmission Date: 20220720
  Serious: Yes (Hospitalization)
  Sender: FDA-Public Use
  Company Number: US-BRISTOL-MYERS SQUIBB COMPANY-2022-035810

PATIENT
  Age: 79 Year
  Sex: Male

DRUGS (3)
  1. ELIQUIS [Suspect]
     Active Substance: APIXABAN
     Indication: Atrial fibrillation
     Dosage: DOSE : UNAVAILABLE;     FREQ : TWICE A DAY, ONCE IN THE MORNING AND ONCE IN THE EVENING.
     Route: 048
     Dates: start: 20210728
  2. LISINOPRIL [Concomitant]
     Active Substance: LISINOPRIL
  3. COENZYME Q10 [Concomitant]
     Active Substance: DIETARY SUPPLEMENT\UBIDECARENONE

REACTIONS (1)
  - Spinal disorder [Unknown]
